FAERS Safety Report 9494502 (Version 1)
Quarter: 2013Q3

REPORT INFORMATION
  Report Type: Report from Study
  Country: KR (occurrence: KR)
  Receive Date: 20130903
  Receipt Date: 20130903
  Transmission Date: 20140515
  Serious: Yes (Other)
  Sender: FDA-Public Use
  Company Number: KR-ASTELLAS-2013JP008956

PATIENT
  Age: 36 Year
  Sex: Female

DRUGS (16)
  1. TACROLIMUS CAPSULES [Suspect]
     Indication: LUPUS NEPHRITIS
     Dosage: 3 MG, UNKNOWN/D
     Route: 048
     Dates: start: 20101001, end: 20110613
  2. TACROLIMUS CAPSULES [Suspect]
     Dosage: 2 MG, UNKNOWN/D
     Route: 048
     Dates: start: 20100907, end: 20100930
  3. TACROLIMUS CAPSULES [Suspect]
     Dosage: 1 MG, UNKNOWN/D
     Route: 048
     Dates: start: 20110725, end: 20110728
  4. TACROLIMUS CAPSULES [Suspect]
     Dosage: 2 MG, UNKNOWN/D
     Route: 048
     Dates: start: 20110729, end: 20110801
  5. TACROLIMUS CAPSULES [Suspect]
     Dosage: 3 MG, UNKNOWN/D
     Route: 048
     Dates: start: 20110802
  6. VALSARTAN [Concomitant]
     Indication: LUPUS NEPHRITIS
     Dosage: 80 MG, UNKNOWN/D
     Route: 048
     Dates: end: 20110728
  7. ATORVASTATIN [Concomitant]
     Indication: HYPERLIPIDAEMIA
     Dosage: 20 MG, UNKNOWN/D
     Route: 048
     Dates: end: 20110801
  8. REBAMIPIDE [Concomitant]
     Indication: PROPHYLAXIS
     Dosage: 100 MG, UNKNOWN/D
     Route: 048
     Dates: end: 20110801
  9. DEFLAZACORT [Concomitant]
     Indication: LUPUS NEPHRITIS
     Dosage: 21 MG, UNKNOWN/D
     Route: 048
     Dates: start: 20100907, end: 20101028
  10. DEFLAZACORT [Concomitant]
     Dosage: 15 MG, UNKNOWN/D
     Route: 048
     Dates: start: 20101029, end: 20110421
  11. DEFLAZACORT [Concomitant]
     Dosage: 18 MG, UNKNOWN/D
     Route: 048
     Dates: start: 20110422, end: 20110808
  12. DEFLAZACORT [Concomitant]
     Dosage: 27 MG, UNKNOWN/D
     Route: 048
     Dates: start: 20110809
  13. CORTICOSTEROID NOS [Concomitant]
     Dosage: 21 MG, UNKNOWN/D
     Route: 065
     Dates: start: 20100907
  14. CORTICOSTEROID NOS [Concomitant]
     Dosage: 15 MG, UNKNOWN/D
     Route: 065
     Dates: start: 20101203
  15. CORTICOSTEROID NOS [Concomitant]
     Dosage: 15 MG, UNKNOWN/D
     Route: 065
     Dates: start: 20110225
  16. CORTICOSTEROID NOS [Concomitant]
     Dosage: 27 MG, UNKNOWN/D
     Route: 065
     Dates: start: 20110909

REACTIONS (1)
  - Cholecystitis [Recovered/Resolved]
